FAERS Safety Report 20322551 (Version 1)
Quarter: 2022Q1

REPORT INFORMATION
  Report Type: Spontaneous
  Country: US (occurrence: None)
  Receive Date: 20220110
  Receipt Date: 20220110
  Transmission Date: 20220424
  Serious: Yes (unspecified)
  Sender: FDA-Public Use
  Company Number: None

PATIENT
  Age: 68 Year
  Sex: Male
  Weight: 83.25 kg

DRUGS (4)
  1. PAREMYD [Suspect]
     Active Substance: HYDROXYAMPHETAMINE HYDROBROMIDE\TROPICAMIDE
     Indication: Pupil dilation procedure
  2. BROMODINE [Concomitant]
  3. TROSOP [Concomitant]
  4. LUMIGAN [Concomitant]
     Active Substance: BIMATOPROST

REACTIONS (1)
  - Intraocular pressure increased [None]

NARRATIVE: CASE EVENT DATE: 20201029
